FAERS Safety Report 6335995-2 (Version None)
Quarter: 2009Q3

REPORT INFORMATION
  Report Type: 
  Country: None (occurrence: None)
  Receive Date: 20090901
  Receipt Date: 20090824
  Transmission Date: 20100115
  Serious: Yes (Hospitalization)
  Sender: FDA-Public Use
  Company Number: DK-KINGPHARMUSA00001-K200901035

PATIENT
  Sex: Male
  Weight: 85 kg

DRUGS (1)
  1. EPIPEN [Suspect]
     Dosage: 0.3 MG, SINGLE
     Dates: start: 20090709, end: 20090709

REACTIONS (7)
  - ACCIDENTAL EXPOSURE [None]
  - ANXIETY [None]
  - BLOOD PRESSURE INCREASED [None]
  - MYDRIASIS [None]
  - NERVOUSNESS [None]
  - PALPITATIONS [None]
  - TREMOR [None]
